FAERS Safety Report 7031612-7 (Version None)
Quarter: 2010Q4

REPORT INFORMATION
  Report Type: 
  Country: None (occurrence: None)
  Receive Date: 20101006
  Receipt Date: 20101006
  Transmission Date: 20110411
  Serious: Yes (Other)
  Sender: FDA-Public Use
  Company Number: None

PATIENT

DRUGS (2)
  1. AMBIEN [Suspect]
     Dosage: 10 MG.
  2. AMBIEN [Suspect]

REACTIONS (3)
  - NAUSEA [None]
  - PRODUCT TAMPERING [None]
  - VOMITING [None]
